FAERS Safety Report 18576524 (Version 1)
Quarter: 2020Q4

REPORT INFORMATION
  Report Type: Spontaneous
  Country: DE (occurrence: DE)
  Receive Date: 20201203
  Receipt Date: 20201203
  Transmission Date: 20210114
  Serious: Yes (Other)
  Sender: FDA-Public Use
  Company Number: DE-ALLERGAN-2046571US

PATIENT
  Sex: Male
  Weight: 153 kg

DRUGS (4)
  1. CARIPRAZINE HCL - BP [Suspect]
     Active Substance: CARIPRAZINE HYDROCHLORIDE
     Dosage: TAKING IN DIFFERENT DOSES
     Route: 048
     Dates: start: 2019
  2. LAMOTRIGIN [Concomitant]
     Active Substance: LAMOTRIGINE
     Indication: PRODUCT USED FOR UNKNOWN INDICATION
     Dosage: 200 MG - 0 - 175MG
     Route: 048
     Dates: start: 201908
  3. CARIPRAZINE HCL - BP [Suspect]
     Active Substance: CARIPRAZINE HYDROCHLORIDE
     Indication: SCHIZOAFFECTIVE DISORDER
     Dosage: DOSING STARTS WITH 6 MG, THEN DOSED DOWN BY 1.5 MG WITHIN 5-6 WEEKS
     Route: 048
     Dates: end: 20201030
  4. PROTHYRID 100/10 [Concomitant]
     Indication: HYPOTHYROIDISM
     Dosage: 1 DF, QD
     Route: 048
     Dates: start: 2013

REACTIONS (8)
  - Vomiting [Recovered/Resolved]
  - Epileptic aura [Recovered/Resolved]
  - Heart rate increased [Recovered/Resolved]
  - Drug withdrawal syndrome [Recovered/Resolved]
  - Epilepsy [Recovered/Resolved]
  - Sleep disorder [Recovered/Resolved]
  - Blood pressure increased [Recovered/Resolved]
  - Initial insomnia [Recovered/Resolved]

NARRATIVE: CASE EVENT DATE: 2019
